FAERS Safety Report 8087382-7 (Version None)
Quarter: 2012Q1

REPORT INFORMATION
  Report Type: 
  Country: None (occurrence: None)
  Receive Date: 20120128
  Receipt Date: 20110506
  Transmission Date: 20120608
  Serious: No
  Sender: FDA-Public Use
  Company Number: US-ABBOTT-11P-163-0724323-00

PATIENT
  Sex: Female
  Weight: 77.18 kg

DRUGS (11)
  1. PREDNISONE TAB [Concomitant]
     Indication: RHEUMATOID ARTHRITIS
  2. DIOVAN [Concomitant]
     Indication: HYPERTENSION
  3. FOLIC ACID [Concomitant]
     Indication: VITAMIN SUPPLEMENTATION
  4. PRILOSEC [Concomitant]
     Indication: GASTROOESOPHAGEAL REFLUX DISEASE
  5. ASPIRIN [Concomitant]
     Indication: PROPHYLAXIS
  6. DILTIAZEM HCL [Concomitant]
     Indication: HYPERTENSION
  7. LIVALO [Concomitant]
     Indication: BLOOD CHOLESTEROL INCREASED
  8. METHOTREXATE [Concomitant]
     Indication: RHEUMATOID ARTHRITIS
  9. TRAMADOL HCL [Concomitant]
     Indication: PAIN
  10. TRIAMTERENE AND HYDROCHLOROTHIAZIDE [Concomitant]
     Indication: HYPERTENSION
  11. HUMIRA [Suspect]
     Indication: RHEUMATOID ARTHRITIS
     Dates: start: 20110422

REACTIONS (2)
  - NASOPHARYNGITIS [None]
  - COUGH [None]
